FAERS Safety Report 9855580 (Version 2)
Quarter: 2014Q1

REPORT INFORMATION
  Report Type: Report from Study
  Country: US (occurrence: US)
  Receive Date: 20140130
  Receipt Date: 20140130
  Transmission Date: 20141002
  Serious: Yes (Hospitalization, Other)
  Sender: FDA-Public Use
  Company Number: PHEH2013US025607

PATIENT
  Age: 35 Year
  Sex: Female

DRUGS (8)
  1. GLEEVEC [Suspect]
     Indication: CHRONIC MYELOID LEUKAEMIA
     Dosage: 400 MG, QD
     Route: 048
  2. GLEEVEC [Suspect]
     Dosage: 1.5 DF, DAILY
     Route: 048
  3. GLEEVEC [Suspect]
     Dosage: UNK UKN, UNK
     Dates: end: 201305
  4. GLEEVEC [Suspect]
     Dosage: 600 MG, QD
     Route: 048
     Dates: start: 201312
  5. GLEEVEC [Suspect]
     Dosage: 100 MG, 1 AND 1/2 TAB DAILY
     Route: 048
  6. HYDROXYUREA [Concomitant]
     Dosage: 1000 MG, BID
     Route: 048
  7. HYDROXYUREA [Concomitant]
     Dosage: 1000 MG, QD
  8. PERCOCET [Concomitant]
     Dosage: 1 OR 2 DF Q3 TO Q4 HOUR, PRN
     Route: 048

REACTIONS (21)
  - Schizophrenia [Unknown]
  - Depression [Unknown]
  - Chronic myeloid leukaemia [Unknown]
  - Splenomegaly [Recovering/Resolving]
  - Tooth fracture [Unknown]
  - Toothache [Unknown]
  - Body mass index increased [Not Recovered/Not Resolved]
  - Infrequent bowel movements [Recovering/Resolving]
  - Malaise [Unknown]
  - Swelling face [Unknown]
  - White blood cell count increased [Recovering/Resolving]
  - Nausea [Recovering/Resolving]
  - Haemoglobin decreased [Not Recovered/Not Resolved]
  - Platelet count increased [Recovering/Resolving]
  - Red blood cell count decreased [Not Recovered/Not Resolved]
  - Haematocrit decreased [Not Recovered/Not Resolved]
  - Abdominal pain [Recovering/Resolving]
  - Dyspepsia [Unknown]
  - Pyrexia [Recovering/Resolving]
  - Alopecia [Unknown]
  - Fatigue [Unknown]
